FAERS Safety Report 4379258-3 (Version None)
Quarter: 2004Q2

REPORT INFORMATION
  Report Type: 
  Country: None (occurrence: None)
  Receive Date: 20040610
  Receipt Date: 20040601
  Transmission Date: 20050107
  Serious: Yes (Hospitalization)
  Sender: FDA-Public Use
  Company Number: USA-2004-0015482

PATIENT
  Age: 30 Year
  Sex: Female

DRUGS (1)
  1. CEFDITOREN PIVOXIL (CEFDITOREN PIVOXIL) [Suspect]
     Dosage: ORAL
     Route: 048
     Dates: start: 20030708

REACTIONS (2)
  - HYPERSENSITIVITY [None]
  - MYOCARDITIS [None]
